FAERS Safety Report 9130082 (Version 3)
Quarter: 2014Q1

REPORT INFORMATION
  Report Type: Spontaneous
  Country: US (occurrence: US)
  Receive Date: 20130228
  Receipt Date: 20140129
  Transmission Date: 20141002
  Serious: No
  Sender: FDA-Public Use
  Company Number: US-PFIZER INC-2013071121

PATIENT
  Age: 67 Year
  Sex: Female

DRUGS (4)
  1. DILANTIN-125 [Suspect]
     Dosage: UNK
  2. HALCION [Suspect]
     Dosage: UNK
  3. SECONAL [Suspect]
     Dosage: UNK
  4. NEMBUTAL SODIUM [Suspect]
     Dosage: UNK

REACTIONS (2)
  - Drug hypersensitivity [Unknown]
  - Headache [Unknown]
